FAERS Safety Report 14699720 (Version 2)
Quarter: 2018Q2

REPORT INFORMATION
  Report Type: Spontaneous
  Country: FR (occurrence: FR)
  Receive Date: 20180330
  Receipt Date: 20180405
  Transmission Date: 20180711
  Serious: Yes (Death, Hospitalization)
  Sender: FDA-Public Use
  Company Number: FR-MYLANLABS-2018M1021129

PATIENT
  Age: 81 Year
  Sex: Female
  Weight: 64 kg

DRUGS (2)
  1. FLUVOXAMINE [Suspect]
     Active Substance: FLUVOXAMINE
     Indication: PRODUCT USED FOR UNKNOWN INDICATION
     Dosage: UNK UNK, UNKNOWN FREQ.
  2. VESICARE [Interacting]
     Active Substance: SOLIFENACIN SUCCINATE
     Indication: HYPERTONIC BLADDER
     Dosage: 10 MG, QD
     Dates: start: 20161220, end: 20170122

REACTIONS (6)
  - Choking [Fatal]
  - Hallucination [Recovered/Resolved]
  - Drug interaction [Unknown]
  - Vertigo [Recovered/Resolved]
  - Slipping rib syndrome [Recovered/Resolved]
  - Urinary tract infection [Recovered/Resolved]

NARRATIVE: CASE EVENT DATE: 20170101
